FAERS Safety Report 8119510-9 (Version None)
Quarter: 2011Q4

REPORT INFORMATION
  Report Type: 
  Country: None (occurrence: None)
  Receive Date: 20111227
  Receipt Date: 20111018
  Transmission Date: 20120403
  Serious: No
  Sender: FDA-Public Use
  Company Number: PHEH2011US05621

PATIENT
  Age: 59 Year
  Sex: Female
  Weight: 62.6 kg

DRUGS (7)
  1. CALCIUM CARBONATE [Concomitant]
  2. BACLOFEN [Concomitant]
  3. PROVIGIL [Concomitant]
  4. VESICARE [Concomitant]
  5. GILENYA [Suspect]
     Dosage: 0.5 MG, QD, ORAL
     Route: 048
  6. ASPIRIN N (ACETYLSALICYLIC ACID) [Concomitant]
  7. GABAPENTIN [Concomitant]

REACTIONS (2)
  - FEELING ABNORMAL [None]
  - DYSACUSIS [None]
